FAERS Safety Report 12275861 (Version 2)
Quarter: 2016Q2

REPORT INFORMATION
  Report Type: Report from Study
  Country: ES (occurrence: ES)
  Receive Date: 20160418
  Receipt Date: 20160421
  Transmission Date: 20160815
  Serious: Yes (Death)
  Sender: FDA-Public Use
  Company Number: ES-ROCHE-1742988

PATIENT
  Age: 77 Year
  Sex: Female
  Weight: 84.6 kg

DRUGS (1)
  1. BEVACIZUMAB [Suspect]
     Active Substance: BEVACIZUMAB
     Indication: COLORECTAL CANCER
     Route: 065
     Dates: start: 20151105

REACTIONS (1)
  - Death [Fatal]

NARRATIVE: CASE EVENT DATE: 20151124
